FAERS Safety Report 12213643 (Version 1)
Quarter: 2016Q1

REPORT INFORMATION
  Report Type: Spontaneous
  Country: US (occurrence: US)
  Receive Date: 20160328
  Receipt Date: 20160328
  Transmission Date: 20160526
  Serious: Yes (Hospitalization)
  Sender: FDA-Public Use
  Company Number: US-SA-2016SA059420

PATIENT
  Sex: Male

DRUGS (1)
  1. NASACORT ALLERGY 24HR [Suspect]
     Active Substance: TRIAMCINOLONE ACETONIDE
     Indication: NASAL CONGESTION
     Dosage: START DATE 4-5 YEARS?DOSE 1 SPRAY EACH?NOSTRIL
     Route: 045
     Dates: end: 20160219

REACTIONS (1)
  - Guillain-Barre syndrome [Unknown]
